FAERS Safety Report 4952657-4 (Version None)
Quarter: 2006Q1

REPORT INFORMATION
  Report Type: 
  Country: None (occurrence: None)
  Receive Date: 20060324
  Receipt Date: 20060315
  Transmission Date: 20060701
  Serious: Yes (Hospitalization)
  Sender: FDA-Public Use
  Company Number: FR-ABBOTT-06P-056-0328383-00

PATIENT
  Age: 41 Year
  Sex: Male
  Weight: 77 kg

DRUGS (4)
  1. KALETRA [Suspect]
     Indication: HIV INFECTION
     Route: 048
  2. DIDANOSINE [Suspect]
     Indication: HIV INFECTION
     Route: 048
  3. LAMIVUDINE + ABACAVIR [Suspect]
     Indication: HIV INFECTION
     Route: 048
     Dates: start: 20050821
  4. LEVOCARNITIN [Concomitant]
     Indication: MITOCHONDRIAL CYTOPATHY
     Dates: start: 20060117

REACTIONS (4)
  - BALANCE DISORDER [None]
  - DIZZINESS [None]
  - FALL [None]
  - VERTIGO [None]
